FAERS Safety Report 8791969 (Version 2)
Quarter: 2012Q4

REPORT INFORMATION
  Report Type: 
  Country: US (occurrence: US)
  Receive Date: 20120918
  Receipt Date: 20121015
  Transmission Date: 20130627
  Serious: Yes (Other)
  Sender: FDA-Public Use
  Company Number: US-PFIZER INC-2012228412

PATIENT
  Age: 50 Year
  Sex: Male
  Weight: 81.63 kg

DRUGS (8)
  1. VIAGRA [Suspect]
     Indication: ERECTILE DYSFUNCTION
     Dosage: 50 mg, as needed
     Route: 048
     Dates: start: 2007
  2. VIAGRA [Suspect]
     Dosage: 100 mg, as needed
     Route: 048
  3. METFORMIN [Concomitant]
     Indication: DIABETES MELLITUS
     Dosage: 1000 mg, 2x/day
  4. ATENOLOL [Concomitant]
     Indication: HYPERTENSION
     Dosage: 50 mg, daily
  5. LOSARTAN [Concomitant]
     Indication: HYPERTENSION
     Dosage: 50 mg, daily
  6. ZANTAC [Concomitant]
     Indication: GASTRIC DISORDER
     Dosage: 40 or 50mg, as needed
  7. PAROXETINE [Concomitant]
     Indication: DEPRESSION
     Dosage: 40 mg, daily
  8. DIAZEPAM [Concomitant]
     Indication: ANXIETY
     Dosage: 5 mg, 2x/day

REACTIONS (3)
  - Arterial occlusive disease [Unknown]
  - Cholelithiasis [Unknown]
  - Drug ineffective [Unknown]
